FAERS Safety Report 10168154 (Version 2)
Quarter: 2014Q2

REPORT INFORMATION
  Report Type: Report from Study
  Country: TR (occurrence: TR)
  Receive Date: 20140512
  Receipt Date: 20140512
  Transmission Date: 20141212
  Serious: Yes (Other)
  Sender: FDA-Public Use
  Company Number: TR-US-EMD SERONO, INC.-7276032

PATIENT
  Sex: Female

DRUGS (2)
  1. REBIF [Suspect]
     Indication: MULTIPLE SCLEROSIS
     Route: 058
     Dates: start: 201212, end: 20140305
  2. PAROL [Concomitant]
     Indication: ANALGESIC THERAPY
     Route: 048
     Dates: start: 201212, end: 20140305

REACTIONS (2)
  - Foetal heart rate abnormal [Unknown]
  - Maternal exposure during pregnancy [Recovered/Resolved]
